FAERS Safety Report 17849971 (Version 3)
Quarter: 2020Q2

REPORT INFORMATION
  Report Type: Spontaneous
  Country: ES (occurrence: ES)
  Receive Date: 20200602
  Receipt Date: 20200623
  Transmission Date: 20200714
  Serious: Yes (Other)
  Sender: FDA-Public Use
  Company Number: NVSC2020ES143067

PATIENT
  Age: 52 Year
  Sex: Male

DRUGS (11)
  1. MITOMYCIN. [Suspect]
     Active Substance: MITOMYCIN
     Indication: OPEN ANGLE GLAUCOMA
     Dosage: 0.2 MG/ML
     Route: 057
     Dates: start: 201209, end: 201209
  2. SODIUM HYALURONATE [Concomitant]
     Active Substance: HYALURONATE SODIUM
     Indication: OPEN ANGLE GLAUCOMA
     Dosage: 10 MG/ML
     Route: 031
     Dates: start: 201209, end: 201209
  3. SODIUM HYALURONATE [Concomitant]
     Active Substance: HYALURONATE SODIUM
     Indication: INTRAOPERATIVE CARE
  4. MITOMYCIN. [Suspect]
     Active Substance: MITOMYCIN
     Indication: INTRAOPERATIVE CARE
     Dosage: APPLIED FOR 90 S
     Route: 065
  5. MOXIFLOXACIN. [Suspect]
     Active Substance: MOXIFLOXACIN
     Indication: POSTOPERATIVE CARE
     Dosage: 0.1ML OF 5MG/ML
     Route: 031
     Dates: start: 201209, end: 201209
  6. HYALURONIC ACID [Concomitant]
     Active Substance: HYALURONIC ACID
     Indication: INTRAOPERATIVE CARE
     Dosage: 10 MG/ML INTO THE ANTERIOR CHAMBER
     Route: 065
  7. DICLOFENAC SODIUM. [Suspect]
     Active Substance: DICLOFENAC SODIUM
     Indication: POSTOPERATIVE CARE
     Dosage: 1 MG/ML, TID (1 DROP)
     Route: 065
  8. PREDNISOLONE ACETATE. [Suspect]
     Active Substance: PREDNISOLONE ACETATE
     Indication: POSTOPERATIVE CARE
     Dosage: 10 MG/ML (STARTING 6 TIMES DAILY AND TAPERED 1 DROP PER WEEK)
     Route: 065
     Dates: start: 2012
  9. PREDNISOLONE ACETATE. [Suspect]
     Active Substance: PREDNISOLONE ACETATE
     Dosage: 10 MG/ML, Q4H
     Route: 065
     Dates: start: 2012
  10. MOXIFLOXACIN. [Suspect]
     Active Substance: MOXIFLOXACIN
     Indication: PROPHYLAXIS
     Dosage: 4 DRP, QD
     Route: 047
     Dates: start: 201209
  11. MOXIFLOXACIN. [Suspect]
     Active Substance: MOXIFLOXACIN
     Dosage: 1 DF, Q6H, 5 MG/ML, QID
     Route: 065

REACTIONS (7)
  - Pupillary disorder [Not Recovered/Not Resolved]
  - Iris hypopigmentation [Recovering/Resolving]
  - Intentional product use issue [Recovered/Resolved]
  - Toxicity to various agents [Not Recovered/Not Resolved]
  - Mydriasis [Not Recovered/Not Resolved]
  - Product use in unapproved indication [Recovered/Resolved]
  - Pigment dispersion syndrome [Not Recovered/Not Resolved]

NARRATIVE: CASE EVENT DATE: 201209
